FAERS Safety Report 6432860-7 (Version None)
Quarter: 2009Q4

REPORT INFORMATION
  Report Type: 
  Country: None (occurrence: None)
  Receive Date: 20091109
  Receipt Date: 20091102
  Transmission Date: 20100525
  Serious: Yes (Hospitalization)
  Sender: FDA-Public Use
  Company Number: B0602265B

PATIENT
  Sex: Female
  Weight: 67 kg

DRUGS (5)
  1. LAPATINIB [Suspect]
     Indication: BREAST CANCER
     Dosage: 1250MG PER DAY
     Route: 048
     Dates: start: 20091005
  2. EPIRUBICIN [Suspect]
     Indication: BREAST CANCER
     Dosage: 149MG CYCLIC
     Route: 042
     Dates: start: 20091005
  3. CYCLOPHOSPHAMIDE [Suspect]
     Indication: BREAST CANCER
     Dosage: 996MG CYCLIC
     Route: 042
     Dates: start: 20091005
  4. MARCUMAR [Concomitant]
     Dosage: 3MG PER DAY
     Dates: start: 20091016
  5. IMODIUM [Concomitant]
     Dosage: 2MG PER DAY
     Dates: start: 20091011

REACTIONS (2)
  - COAGULOPATHY [None]
  - DIARRHOEA [None]
